FAERS Safety Report 23889596 (Version 1)
Quarter: 2024Q2

REPORT INFORMATION
  Report Type: Spontaneous
  Country: US (occurrence: US)
  Receive Date: 20240523
  Receipt Date: 20240523
  Transmission Date: 20240715
  Serious: Yes (Other)
  Sender: FDA-Public Use
  Company Number: US-BRISTOL-MYERS SQUIBB COMPANY-2024-069002

PATIENT
  Age: 69 Year
  Sex: Female

DRUGS (2)
  1. LENALIDOMIDE [Suspect]
     Active Substance: LENALIDOMIDE
     Indication: Plasma cell myeloma
     Dosage: FREQUENCY: TAKE 1 WHOLE CAPSULE BY MOUTH WITH WATER AT THE SAME TIME DAILY ON DAYS 1-14 OF EACH 21-D
     Route: 048
  2. VELCADE [Suspect]
     Active Substance: BORTEZOMIB
     Indication: Product used for unknown indication

REACTIONS (16)
  - Product supply issue [Unknown]
  - Insomnia [Unknown]
  - Illness [Unknown]
  - Constipation [Unknown]
  - Peripheral swelling [Unknown]
  - Hypoaesthesia [Unknown]
  - Spinal fracture [Unknown]
  - Eating disorder [Unknown]
  - Bone disorder [Unknown]
  - Abdominal distension [Unknown]
  - Hiccups [Unknown]
  - Abdominal pain upper [Unknown]
  - Off label use [Unknown]
  - Respiratory tract infection [Recovering/Resolving]
  - Therapy interrupted [Unknown]
  - Rib fracture [Unknown]
